FAERS Safety Report 11574013 (Version 2)
Quarter: 2015Q4

REPORT INFORMATION
  Report Type: Report from Study
  Country: US (occurrence: US)
  Receive Date: 20150930
  Receipt Date: 20151005
  Transmission Date: 20160304
  Serious: No
  Sender: FDA-Public Use
  Company Number: US-AMGEN-USASL2015095613

PATIENT
  Age: 70 Year
  Sex: Female

DRUGS (2)
  1. METHOTREXATE [Suspect]
     Active Substance: METHOTREXATE
     Indication: PRODUCT USED FOR UNKNOWN INDICATION
     Dosage: UNK
     Route: 065
  2. ENBREL [Suspect]
     Active Substance: ETANERCEPT
     Indication: RHEUMATOID ARTHRITIS
     Dosage: 50 MG, QWK
     Route: 065
     Dates: start: 201508

REACTIONS (16)
  - Injection site reaction [Unknown]
  - Injection site inflammation [Unknown]
  - Injection site induration [Unknown]
  - Drug hypersensitivity [Unknown]
  - Aphonia [Unknown]
  - Injection site erythema [Unknown]
  - Dyspnoea [Unknown]
  - Pallor [Unknown]
  - Injection site warmth [Unknown]
  - Injection site urticaria [Unknown]
  - Dysphonia [Unknown]
  - Feeling abnormal [Unknown]
  - Throat irritation [Unknown]
  - Hypersensitivity [Unknown]
  - Throat tightness [Unknown]
  - Contrast media allergy [Unknown]

NARRATIVE: CASE EVENT DATE: 2015
